FAERS Safety Report 7343871-1 (Version None)
Quarter: 2011Q1

REPORT INFORMATION
  Report Type: 
  Country: None (occurrence: None)
  Receive Date: 20110310
  Receipt Date: 20110225
  Transmission Date: 20110831
  Serious: Yes (Other)
  Sender: FDA-Public Use
  Company Number: PHHY2011CH18122

PATIENT
  Age: 44 Year

DRUGS (5)
  1. PHENOBARBITAL [Interacting]
     Dosage: UNK
  2. CICLOSPORIN [Suspect]
     Indication: RENAL TRANSPLANT
     Dosage: 500 MG, BID
  3. MYCOPHENOLATE MOFETIL [Concomitant]
     Dosage: UNK
  4. PREDNISONE [Concomitant]
     Dosage: UNK
  5. EVEROLIMUS [Concomitant]
     Dosage: UNK

REACTIONS (15)
  - OEDEMA [None]
  - VITAMIN D DECREASED [None]
  - GAIT DISTURBANCE [None]
  - PAIN IN EXTREMITY [None]
  - HYPOPHOSPHATAEMIA [None]
  - LEUKOCYTOSIS [None]
  - POST TRANSPLANT DISTAL LIMB SYNDROME [None]
  - ARTHRALGIA [None]
  - BONE PAIN [None]
  - WALKING AID USER [None]
  - DRUG INTERACTION [None]
  - HYPERCALCAEMIA [None]
  - BONE MARROW OEDEMA [None]
  - BLOOD ALKALINE PHOSPHATASE INCREASED [None]
  - RENAL OSTEODYSTROPHY [None]
